FAERS Safety Report 5413608-1 (Version None)
Quarter: 2007Q3

REPORT INFORMATION
  Report Type: 
  Country: None (occurrence: None)
  Receive Date: 20070814
  Receipt Date: 20060814
  Transmission Date: 20080115
  Serious: Yes (Other)
  Sender: FDA-Public Use
  Company Number: US-BRISTOL-MYERS SQUIBB COMPANY-13473384

PATIENT
  Age: 70 Year
  Sex: Female
  Weight: 75 kg

DRUGS (5)
  1. GLUCOVANCE [Suspect]
     Indication: DIABETES MELLITUS
     Dosage: DOSAGE FORM = 5MG/500MG
     Route: 048
     Dates: start: 20060713
  2. VERAPAMIL [Concomitant]
  3. HYDROCHLOROTHIAZIDE [Concomitant]
  4. POTASSIUM CHLORIDE [Concomitant]
     Dates: start: 20051201
  5. CHOLESTEROL MEDICATION [Concomitant]
     Dates: start: 20051201

REACTIONS (4)
  - ASTHENIA [None]
  - DIZZINESS [None]
  - FLATULENCE [None]
  - HYPOGLYCAEMIA [None]
